FAERS Safety Report 8966938 (Version 1)
Quarter: 2012Q4

REPORT INFORMATION
  Report Type: 
  Country: CA (occurrence: CA)
  Receive Date: 20121214
  Receipt Date: 20121214
  Transmission Date: 20130627
  Serious: Yes (Life-Threatening, Hospitalization, Other)
  Sender: FDA-Public Use
  Company Number: CA-B.I. PHARMACEUTICALS,INC./RIDGEFIELD-2012-CN-02563CN

PATIENT
  Age: 76 Year
  Sex: Female

DRUGS (10)
  1. PRADAX [Suspect]
     Dosage: 220 mg
     Route: 048
  2. ADVAIR [Concomitant]
  3. ASA [Concomitant]
  4. ATACAND [Concomitant]
  5. LASIX [Concomitant]
  6. LIPITOR [Concomitant]
  7. LYRICA [Concomitant]
  8. METOPROLOL [Concomitant]
  9. SPIRIVA [Concomitant]
  10. TRAMADOL HYDROCHLORIDE [Concomitant]

REACTIONS (3)
  - Renal failure acute [Recovered/Resolved]
  - Anaemia [Recovered/Resolved]
  - Gastrointestinal haemorrhage [Recovered/Resolved]
